FAERS Safety Report 20947642 (Version 12)
Quarter: 2023Q2

REPORT INFORMATION
  Report Type: Spontaneous
  Country: CA (occurrence: CA)
  Receive Date: 20220611
  Receipt Date: 20230412
  Transmission Date: 20230722
  Serious: Yes (Other)
  Sender: FDA-Public Use
  Company Number: CA-CELLTRION INC.-2020CA028015

PATIENT

DRUGS (30)
  1. INFLECTRA [Suspect]
     Active Substance: INFLIXIMAB-DYYB
     Indication: Colitis ulcerative
     Dosage: 600 MG, AT 0, 2 AND 6 WEEKS, THEN EVERY 4 WEEKS
     Route: 042
     Dates: start: 20201020
  2. INFLECTRA [Suspect]
     Active Substance: INFLIXIMAB-DYYB
     Dosage: 600 MG, AT 0, 2 AND 6 WEEKS, THEN EVERY 4 WEEKS
     Route: 042
     Dates: start: 20201104, end: 20201104
  3. INFLECTRA [Suspect]
     Active Substance: INFLIXIMAB-DYYB
     Dosage: 600 MG, AT 0, 2 AND 6 WEEKS, THEN EVERY 4 WEEKS
     Route: 042
     Dates: start: 20201202
  4. INFLECTRA [Suspect]
     Active Substance: INFLIXIMAB-DYYB
     Dosage: 600 MG, AT 0, 2 AND 6 WEEKS, THEN EVERY 4 WEEKS
     Route: 042
     Dates: start: 20201202
  5. INFLECTRA [Suspect]
     Active Substance: INFLIXIMAB-DYYB
     Dosage: 600 MG, AT 0, 2 AND 6 WEEKS, THEN EVERY 4 WEEKS
     Route: 042
     Dates: start: 20210218
  6. INFLECTRA [Suspect]
     Active Substance: INFLIXIMAB-DYYB
     Dosage: 600 MG, AT 0, 2 AND 6 WEEKS, THEN EVERY 4 WEEKS
     Route: 042
     Dates: start: 20210218
  7. INFLECTRA [Suspect]
     Active Substance: INFLIXIMAB-DYYB
     Dosage: 600 MG, AT 0, 2 AND 6 WEEKS, THEN EVERY 4 WEEKS
     Route: 042
     Dates: start: 20210407
  8. INFLECTRA [Suspect]
     Active Substance: INFLIXIMAB-DYYB
     Dosage: 600 MG, AT 0, 2 AND 6 WEEKS, THEN EVERY 4 WEEKS
     Route: 042
     Dates: start: 20210518
  9. INFLECTRA [Suspect]
     Active Substance: INFLIXIMAB-DYYB
     Dosage: 600 MG, AT 0, 2 AND 6 WEEKS, THEN EVERY 4 WEEKS
     Route: 042
     Dates: start: 20210805
  10. INFLECTRA [Suspect]
     Active Substance: INFLIXIMAB-DYYB
     Dosage: 600 MG, AT 0, 2 AND 6 WEEKS, THEN EVERY 4 WEEKS
     Route: 042
     Dates: start: 20210831
  11. INFLECTRA [Suspect]
     Active Substance: INFLIXIMAB-DYYB
     Dosage: 600 MG, AT 0, 2 AND 6 WEEKS, THEN EVERY 4 WEEKS
     Route: 042
     Dates: start: 20210930
  12. INFLECTRA [Suspect]
     Active Substance: INFLIXIMAB-DYYB
     Dosage: 600 MG, AT 0, 2 AND 6 WEEKS, THEN EVERY 4 WEEKS
     Route: 042
     Dates: start: 20211026
  13. INFLECTRA [Suspect]
     Active Substance: INFLIXIMAB-DYYB
     Dosage: 600 MG, AT 0, 2 AND 6 WEEKS, THEN EVERY 4 WEEKS
     Route: 042
     Dates: start: 20211126
  14. INFLECTRA [Suspect]
     Active Substance: INFLIXIMAB-DYYB
     Dosage: 600 MG, AT 0, 2 AND 6 WEEKS, THEN EVERY 4 WEEKS
     Route: 042
     Dates: start: 20220120
  15. INFLECTRA [Suspect]
     Active Substance: INFLIXIMAB-DYYB
     Dosage: 600 MG, AT 0, 2 AND 6 WEEKS, THEN EVERY 4 WEEKS
     Route: 042
     Dates: start: 20220120
  16. INFLECTRA [Suspect]
     Active Substance: INFLIXIMAB-DYYB
     Dosage: 600 MG, AT 0, 2 AND 6 WEEKS, THEN EVERY 4 WEEKS
     Route: 042
     Dates: start: 20220120
  17. INFLECTRA [Suspect]
     Active Substance: INFLIXIMAB-DYYB
     Dosage: 600 MG, AT 0, 2 AND 6 WEEKS, THEN EVERY 4 WEEKS
     Route: 042
     Dates: start: 20220317
  18. INFLECTRA [Suspect]
     Active Substance: INFLIXIMAB-DYYB
     Dosage: 600 MG, AT 0, 2 AND 6 WEEKS, THEN EVERY 4 WEEKS
     Route: 042
     Dates: start: 20220317
  19. INFLECTRA [Suspect]
     Active Substance: INFLIXIMAB-DYYB
     Dosage: 600 MG, AT 0, 2 AND 6 WEEKS, THEN EVERY 4 WEEKS
     Route: 042
     Dates: start: 20220418
  20. INFLECTRA [Suspect]
     Active Substance: INFLIXIMAB-DYYB
     Dosage: 600 MG, AT 0, 2 AND 6 WEEKS, THEN EVERY 4 WEEKS
     Route: 042
     Dates: start: 20220622
  21. INFLECTRA [Suspect]
     Active Substance: INFLIXIMAB-DYYB
     Dosage: 600 MG, AT 0, 2 AND 6 WEEKS, THEN EVERY 4 WEEKS
     Route: 042
     Dates: start: 20220720
  22. INFLECTRA [Suspect]
     Active Substance: INFLIXIMAB-DYYB
     Dosage: 600 MG, AT 0, 2 AND 6 WEEKS, THEN EVERY 4 WEEKS
     Route: 042
     Dates: start: 20220824
  23. INFLECTRA [Suspect]
     Active Substance: INFLIXIMAB-DYYB
     Dosage: 600 MG, AT 0, 2 AND 6 WEEKS, THEN EVERY 4 WEEKS
     Route: 042
     Dates: start: 20220920
  24. INFLECTRA [Suspect]
     Active Substance: INFLIXIMAB-DYYB
     Dosage: 600 MG, Q 0, 2 AND 6 WEEKS, THEN EVERY 4 WEEKS
     Route: 042
     Dates: start: 20221029
  25. INFLECTRA [Suspect]
     Active Substance: INFLIXIMAB-DYYB
     Dosage: 600 MG, Q 0, 2 AND 6 WEEKS, THEN EVERY 4 WEEKS
     Route: 042
     Dates: start: 20221115
  26. INFLECTRA [Suspect]
     Active Substance: INFLIXIMAB-DYYB
     Dosage: 600 MG, Q 0, 2 AND 6 WEEKS, THEN EVERY 4 WEEKS
     Route: 042
     Dates: start: 20230109
  27. INFLECTRA [Suspect]
     Active Substance: INFLIXIMAB-DYYB
     Dosage: 600 MG, Q 0, 2 AND 6 WEEKS, THEN EVERY 4 WEEKS
     Route: 042
     Dates: start: 20230207
  28. INFLECTRA [Suspect]
     Active Substance: INFLIXIMAB-DYYB
     Dosage: 600 MG, Q 0, 2 AND 6 WEEKS, THEN EVERY 4 WEEKS
     Route: 042
     Dates: start: 20230307
  29. INFLECTRA [Suspect]
     Active Substance: INFLIXIMAB-DYYB
     Dosage: 600 MG, Q 0, 2 AND 6 WEEKS, THEN EVERY 4 WEEKS
     Route: 042
     Dates: start: 20230404
  30. SEROQUEL [Concomitant]
     Active Substance: QUETIAPINE FUMARATE
     Dosage: 1 DF, UNKNOWN

REACTIONS (10)
  - Staphylococcal infection [Unknown]
  - Off label use [Unknown]
  - Off label use [Unknown]
  - Intentional product use issue [Unknown]
  - Inappropriate schedule of product administration [Unknown]
  - Condition aggravated [Recovering/Resolving]
  - Psoriasis [Recovered/Resolved]
  - Bacterial vaginosis [Unknown]
  - Faecal calprotectin increased [Not Recovered/Not Resolved]
  - Weight decreased [Not Recovered/Not Resolved]

NARRATIVE: CASE EVENT DATE: 20201020
